FAERS Safety Report 19499657 (Version 1)
Quarter: 2021Q3

REPORT INFORMATION
  Report Type: Spontaneous
  Country: US (occurrence: US)
  Receive Date: 20210707
  Receipt Date: 20210707
  Transmission Date: 20211014
  Serious: Yes (Life-Threatening, Hospitalization, Other)
  Sender: FDA-Public Use
  Company Number: US-SUN PHARMACEUTICAL INDUSTRIES LTD-2021R1-302322

PATIENT
  Age: 31 Year
  Sex: Male

DRUGS (1)
  1. ACETAMINOPHEN. [Suspect]
     Active Substance: ACETAMINOPHEN
     Indication: PRODUCT USED FOR UNKNOWN INDICATION
     Dosage: 125 GRAM,UNK
     Route: 065

REACTIONS (4)
  - Overdose [Unknown]
  - Toxicity to various agents [Recovering/Resolving]
  - Hepatic necrosis [Recovering/Resolving]
  - Encephalopathy [Recovering/Resolving]
